FAERS Safety Report 10273392 (Version 1)
Quarter: 2014Q2

REPORT INFORMATION
  Report Type: Spontaneous
  Country: US (occurrence: None)
  Receive Date: 20140630
  Receipt Date: 20140630
  Transmission Date: 20141212
  Serious: No
  Sender: FDA-Public Use
  Company Number: None

PATIENT
  Age: 56 Year
  Sex: Female

DRUGS (1)
  1. HUMIRA 40 MG ABBVIE [Suspect]
     Indication: PSORIASIS
     Dosage: 40 MG  QOW  SQ
     Route: 058
     Dates: start: 20111227

REACTIONS (2)
  - Anxiety [None]
  - Impaired work ability [None]
